FAERS Safety Report 21301348 (Version 1)
Quarter: 2022Q3

REPORT INFORMATION
  Report Type: Report from Study
  Country: US (occurrence: US)
  Receive Date: 20220907
  Receipt Date: 20220907
  Transmission Date: 20221027
  Serious: Yes (Other)
  Sender: FDA-Public Use
  Company Number: US-GILEAD-2022-0596582

PATIENT
  Sex: Female

DRUGS (22)
  1. AZTREONAM LYSINE [Suspect]
     Active Substance: AZTREONAM LYSINE
     Indication: Cystic fibrosis lung
     Dosage: 75 MG, TID FOR 28 DAYS ON AND 28 DAYS OFF
     Route: 055
  2. HUMALOG [Concomitant]
     Active Substance: INSULIN LISPRO
  3. VALCYTE [Concomitant]
     Active Substance: VALGANCICLOVIR HYDROCHLORIDE
  4. CELLCEPT [Concomitant]
     Active Substance: MYCOPHENOLATE MOFETIL
  5. SINGULAIR [Concomitant]
     Active Substance: MONTELUKAST SODIUM
  6. ZENPEP [Concomitant]
     Active Substance: PANCRELIPASE AMYLASE\PANCRELIPASE LIPASE\PANCRELIPASE PROTEASE
  7. LIPITOR [Concomitant]
     Active Substance: ATORVASTATIN CALCIUM
  8. LANTUS [Concomitant]
     Active Substance: INSULIN GLARGINE
  9. NORETHINDRONE [Concomitant]
     Active Substance: NORETHINDRONE
  10. PROGRAF [Concomitant]
     Active Substance: TACROLIMUS
  11. PREDNISONE [Concomitant]
     Active Substance: PREDNISONE
  12. OMEPRAZOLE [Concomitant]
     Active Substance: OMEPRAZOLE
  13. MAGNESIUM [Concomitant]
     Active Substance: MAGNESIUM
  14. FOLIC ACID [Concomitant]
     Active Substance: FOLIC ACID
  15. MELATONIN [Concomitant]
     Active Substance: MELATONIN
  16. FERROUS SULFATE [Concomitant]
     Active Substance: FERROUS SULFATE
  17. AMLODIPINE [Concomitant]
     Active Substance: AMLODIPINE BESYLATE
  18. VITAMIN C [Concomitant]
     Active Substance: ASCORBIC ACID
  19. CARVEDILOL [Concomitant]
     Active Substance: CARVEDILOL
  20. AZITHROMYCIN [Concomitant]
     Active Substance: AZITHROMYCIN
  21. VITAMIN D2 [Concomitant]
     Active Substance: ERGOCALCIFEROL
  22. MUPIROCIN [Concomitant]
     Active Substance: MUPIROCIN

REACTIONS (1)
  - Infective pulmonary exacerbation of cystic fibrosis [Unknown]
